FAERS Safety Report 7515976-3 (Version None)
Quarter: 2011Q2

REPORT INFORMATION
  Report Type: 
  Country: None (occurrence: None)
  Receive Date: 20110601
  Receipt Date: 20110524
  Transmission Date: 20111010
  Serious: Yes (Life-Threatening)
  Sender: FDA-Public Use
  Company Number: DE-TEVA-283237GER

PATIENT
  Age: 80 Year
  Sex: Female
  Weight: 65 kg

DRUGS (15)
  1. MARCUMAR [Interacting]
     Indication: ATRIAL FIBRILLATION
     Dates: start: 20080401
  2. ISDN 40MG STADA [Concomitant]
     Indication: HYPERTENSION
     Dosage: 0-0-1/2
     Dates: start: 20050401
  3. BROMAZEPAM AL 6MG [Concomitant]
     Indication: INSOMNIA
     Dosage: 0-0-1/4
     Dates: start: 20090601
  4. L-THYROX 100 [Concomitant]
     Indication: GOITRE
     Dosage: 1/2-0-0
     Dates: start: 20080201
  5. DOXEPIN HCL [Concomitant]
     Indication: INSOMNIA
     Dosage: 0-0-1/2
     Dates: start: 20100801
  6. OPIPRAMOL [Concomitant]
     Dates: start: 20100801, end: 20100901
  7. BISOPROLOL 10 [Concomitant]
     Dosage: 2X1/2 --} 1/2-0-0
     Dates: start: 20070901
  8. VOTUM PLUS 20/25MG [Concomitant]
     Indication: HYPERTENSION
     Dosage: 20 MG OLMESARTAN MEDOXOMIL + 25 MG HYDROCHLOROTHIAZIDE
     Dates: start: 20070101
  9. FUROSEMIDE AL 40 [Concomitant]
     Indication: OEDEMA PERIPHERAL
     Dosage: 1/4-1/4-0
     Dates: start: 20100301
  10. VALPROAT CHRONO 500MG [Concomitant]
     Indication: SYNCOPE
     Dosage: 0-0-1
  11. AMLODIPIN 10 [Concomitant]
     Indication: HYPERTENSION
     Dosage: 1-0-0
     Dates: start: 20070601
  12. DEKRISTOL 20000 [Concomitant]
  13. RAMIPRIL 10 [Concomitant]
     Indication: HYPERTENSION
     Dosage: 2X1/2
     Dates: start: 20061201
  14. FUROSEMIDE AL 40 [Concomitant]
     Dosage: 1/4-0-0
     Dates: start: 20100501
  15. ALENDRONATE SODIUM [Suspect]
     Dosage: 10 MILLIGRAM;
     Dates: start: 20101001

REACTIONS (2)
  - DRUG INTERACTION [None]
  - DRUG EFFECT INCREASED [None]
